FAERS Safety Report 11274412 (Version 1)
Quarter: 2015Q3

REPORT INFORMATION
  Report Type: Spontaneous
  Country: JP (occurrence: JP)
  Receive Date: 20150715
  Receipt Date: 20150715
  Transmission Date: 20151125
  Serious: Yes (Hospitalization)
  Sender: FDA-Public Use
  Company Number: JP-BAUSCH-SP09578

PATIENT
  Age: 58 Year
  Sex: Male

DRUGS (5)
  1. DORMICUM [Concomitant]
     Active Substance: MIDAZOLAM\MIDAZOLAM HYDROCHLORIDE
     Indication: ENDOSCOPY LARGE BOWEL
     Route: 042
     Dates: start: 20150330, end: 20150330
  2. KN (DOBUTAMINE HYDROCHLORIDE) [Concomitant]
     Indication: ENDOSCOPY LARGE BOWEL
     Route: 041
     Dates: start: 20150330, end: 20150330
  3. MOVIPREP [Suspect]
     Active Substance: ASCORBIC ACID\POLYETHYLENE GLYCOL 3350\POTASSIUM CHLORIDE\SODIUM ASCORBATE\SODIUM CHLORIDE\SODIUM SULFATE
     Indication: ENDOSCOPY LARGE BOWEL
     Route: 048
     Dates: start: 20150330, end: 20150330
  4. OPYSTAN [Concomitant]
     Active Substance: MEPERIDINE
     Indication: ENDOSCOPY LARGE BOWEL
     Route: 042
     Dates: start: 20150330, end: 20150330
  5. GLUCAGON. [Concomitant]
     Active Substance: GLUCAGON
     Indication: ENDOSCOPY LARGE BOWEL
     Route: 042
     Dates: start: 20150330, end: 20150330

REACTIONS (4)
  - Loss of consciousness [Unknown]
  - Contusion [Unknown]
  - Fall [Unknown]
  - Subarachnoid haemorrhage [Unknown]

NARRATIVE: CASE EVENT DATE: 20150330
